FAERS Safety Report 10005567 (Version 2)
Quarter: 2014Q2

REPORT INFORMATION
  Report Type: Spontaneous
  Country: US (occurrence: US)
  Receive Date: 20140313
  Receipt Date: 20140522
  Transmission Date: 20141212
  Serious: No
  Sender: FDA-Public Use
  Company Number: US-BIOGENIDEC-2014BI019176

PATIENT
  Age: 64 Year
  Sex: Female
  Weight: 63 kg

DRUGS (7)
  1. TECFIDERA [Suspect]
     Indication: PRODUCT USED FOR UNKNOWN INDICATION
     Route: 048
     Dates: start: 20131112
  2. AMPYRA [Concomitant]
     Indication: MULTIPLE SCLEROSIS
     Route: 048
  3. PROTONIX [Concomitant]
  4. VITAMIN D3 [Concomitant]
  5. VITAMIN B COMPLEX [Concomitant]
  6. ZOLOFT [Concomitant]
  7. CRANBERRY [Concomitant]

REACTIONS (3)
  - Paraesthesia [Not Recovered/Not Resolved]
  - Diarrhoea [Not Recovered/Not Resolved]
  - Nausea [Not Recovered/Not Resolved]
